FAERS Safety Report 5249487-5 (Version None)
Quarter: 2007Q1

REPORT INFORMATION
  Report Type: 
  Country: None (occurrence: None)
  Receive Date: 20070228
  Receipt Date: 20061205
  Transmission Date: 20070707
  Serious: No
  Sender: FDA-Public Use
  Company Number: US-GLAXOSMITHKLINE-A0630450A

PATIENT
  Sex: Male

DRUGS (3)
  1. VALTREX [Suspect]
     Dosage: 500MG PER DAY
     Route: 048
     Dates: start: 20061101
  2. VITAMIN D [Suspect]
     Route: 065
     Dates: start: 20060101
  3. SHAMPOO [Concomitant]

REACTIONS (1)
  - URTICARIA [None]
